FAERS Safety Report 11487242 (Version 3)
Quarter: 2016Q2

REPORT INFORMATION
  Report Type: Spontaneous
  Country: US (occurrence: US)
  Receive Date: 20150910
  Receipt Date: 20160620
  Transmission Date: 20160815
  Serious: Yes (Hospitalization)
  Sender: FDA-Public Use
  Company Number: US-BAYER-2015-418135

PATIENT
  Age: 25 Year
  Sex: Female
  Weight: 113.38 kg

DRUGS (30)
  1. BENADRYL [Concomitant]
     Active Substance: DIPHENHYDRAMINE HYDROCHLORIDE
     Route: 048
  2. IBUPROFEN. [Concomitant]
     Active Substance: IBUPROFEN
  3. NAPROXEN. [Concomitant]
     Active Substance: NAPROXEN
  4. FLUOXETINE [Concomitant]
     Active Substance: FLUOXETINE HYDROCHLORIDE
  5. AZITHROMYCIN ANHYDROUS. [Concomitant]
     Active Substance: AZITHROMYCIN ANHYDROUS
     Indication: INFECTION
  6. GABAPENTIN. [Concomitant]
     Active Substance: GABAPENTIN
  7. CIPRO [Concomitant]
     Active Substance: CIPROFLOXACIN HYDROCHLORIDE
     Indication: INFECTION
  8. CLONAZEPAM. [Concomitant]
     Active Substance: CLONAZEPAM
     Indication: ANXIETY
     Dosage: 1 MG, TID
     Route: 048
  9. CLONAZEPAM. [Concomitant]
     Active Substance: CLONAZEPAM
     Indication: DEPRESSION
  10. FIORICET [Concomitant]
     Active Substance: ACETAMINOPHEN\BUTALBITAL\CAFFEINE
  11. ULTRAM [Concomitant]
     Active Substance: TRAMADOL HYDROCHLORIDE
  12. ALPRAZOLAM. [Concomitant]
     Active Substance: ALPRAZOLAM
  13. BUSPAR [Concomitant]
     Active Substance: BUSPIRONE HYDROCHLORIDE
  14. VICODIN [Concomitant]
     Active Substance: ACETAMINOPHEN\HYDROCODONE BITARTRATE
     Indication: HEADACHE
     Dosage: UNK UNK, PRN
     Route: 048
  15. ATIVAN [Concomitant]
     Active Substance: LORAZEPAM
     Route: 048
  16. XANAX [Concomitant]
     Active Substance: ALPRAZOLAM
  17. FLAGYL [Concomitant]
     Active Substance: METRONIDAZOLE\METRONIDAZOLE HYDROCHLORIDE
  18. PERCOCET [Concomitant]
     Active Substance: ACETAMINOPHEN\OXYCODONE HYDROCHLORIDE
     Indication: PAIN
  19. MIRENA [Suspect]
     Active Substance: LEVONORGESTREL
     Indication: CONTRACEPTION
     Dosage: 20 MCG/24HR, CONT
     Route: 015
     Dates: start: 20081111, end: 20121024
  20. MORPHINE [Concomitant]
     Active Substance: MORPHINE
  21. DIFLUCAN [Concomitant]
     Active Substance: FLUCONAZOLE
  22. KETOROLAC [Concomitant]
     Active Substance: KETOROLAC\KETOROLAC TROMETHAMINE
  23. DECADRON [Concomitant]
     Active Substance: DEXAMETHASONE
  24. DEMEROL [Concomitant]
     Active Substance: MEPERIDINE HYDROCHLORIDE
     Route: 048
  25. AMITRIPTYLINE [Concomitant]
     Active Substance: AMITRIPTYLINE
  26. LIDODERM [Concomitant]
     Active Substance: LIDOCAINE
  27. TORADOL [Concomitant]
     Active Substance: KETOROLAC TROMETHAMINE
  28. LASIX [Concomitant]
     Active Substance: FUROSEMIDE
  29. PROZAC [Concomitant]
     Active Substance: FLUOXETINE HYDROCHLORIDE
     Dosage: 60 MG, QD
     Route: 048
  30. ALEVE [Concomitant]
     Active Substance: NAPROXEN SODIUM

REACTIONS (8)
  - Migraine [None]
  - Pain [None]
  - Benign intracranial hypertension [None]
  - Ovarian cyst [None]
  - Injury [None]
  - Fibromyalgia [None]
  - Device issue [None]
  - Emotional distress [None]

NARRATIVE: CASE EVENT DATE: 2009
